FAERS Safety Report 17910852 (Version 2)
Quarter: 2020Q2

REPORT INFORMATION
  Report Type: Spontaneous
  Country: US (occurrence: US)
  Receive Date: 20200617
  Receipt Date: 20200617
  Transmission Date: 20200714
  Serious: Yes (Disabling)
  Sender: FDA-Public Use
  Company Number: None

PATIENT
  Age: 96 Year
  Sex: Male
  Weight: 99.79 kg

DRUGS (3)
  1. VITAMIN D [Concomitant]
     Active Substance: VITAMIN D NOS
  2. SIMVASTATIN. [Concomitant]
     Active Substance: SIMVASTATIN
  3. AVODART [Suspect]
     Active Substance: DUTASTERIDE
     Indication: DYSURIA
     Dosage: ?          QUANTITY:1 DF DOSAGE FORM;?
     Route: 048
     Dates: start: 201505, end: 201606

REACTIONS (9)
  - Ejaculation disorder [None]
  - Penile size reduced [None]
  - Skin exfoliation [None]
  - Libido decreased [None]
  - Erectile dysfunction [None]
  - Rash [None]
  - Breast mass [None]
  - Breast swelling [None]
  - Dysuria [None]

NARRATIVE: CASE EVENT DATE: 201606
